FAERS Safety Report 8366136-8 (Version None)
Quarter: 2012Q2

REPORT INFORMATION
  Report Type: 
  Country: None (occurrence: None)
  Receive Date: 20120515
  Receipt Date: 20120502
  Transmission Date: 20120825
  Serious: Yes (Hospitalization)
  Sender: FDA-Public Use
  Company Number: AUR-APL-2012-02072

PATIENT
  Age: 82 Year
  Sex: Male

DRUGS (7)
  1. RAMIPRIL [Suspect]
     Indication: HYPERTENSION
     Dosage: 2.5 MG (2.5 MG, 1 I N1 D), ORAL
     Route: 048
     Dates: start: 20110701, end: 20120330
  2. ALDACTONE [Suspect]
     Indication: HYPERTENSION
     Dosage: 100 MG (100 MG, 1 I 1 D), ORAL
     Route: 048
     Dates: start: 20110701, end: 20120322
  3. LASIX [Suspect]
     Indication: HYPERTENSION
     Dosage: 25 MG (25 MG, 1 IN 1 D), ORAL
     Route: 048
     Dates: start: 20110701, end: 20120330
  4. RANITIDINE HYDROCHLORIDE [Concomitant]
  5. CARDIERENE (ACETYLSALATE LYSINE) [Concomitant]
  6. PLAVIX [Concomitant]
  7. ATORVASTATIN CALCIUM [Concomitant]

REACTIONS (2)
  - HYPONATRAEMIA [None]
  - HYPERKALAEMIA [None]
